FAERS Safety Report 7341733-7 (Version None)
Quarter: 2011Q1

REPORT INFORMATION
  Report Type: 
  Country: None (occurrence: None)
  Receive Date: 20110309
  Receipt Date: 20110303
  Transmission Date: 20110831
  Serious: Yes (Hospitalization, Other)
  Sender: FDA-Public Use
  Company Number: DE-PFIZER INC-2011029712

PATIENT
  Age: 49 Year
  Sex: Male
  Weight: 63.7 kg

DRUGS (9)
  1. CLOZAPINE [Interacting]
     Dosage: 375 MG, DAILY
     Route: 048
     Dates: start: 20010101, end: 20101125
  2. CLOZAPINE [Interacting]
     Dosage: 500 MG DAILY
     Dates: start: 20100101, end: 20100101
  3. NEUROCIL [Interacting]
     Indication: SCHIZOPHRENIA
     Dosage: 375 MG, DAILY
     Route: 048
     Dates: start: 20020101
  4. SORMODREN [Concomitant]
     Dosage: UNK
     Dates: end: 20101124
  5. LYRICA [Interacting]
     Dosage: 600 MG DAILY
     Dates: start: 20100901, end: 20101126
  6. CLOZAPINE [Interacting]
     Dosage: 400 MG DAILY
     Dates: start: 20100101, end: 20100101
  7. LYRICA [Interacting]
     Indication: ANXIETY
     Dosage: 300 MG, DAILY
     Route: 048
     Dates: start: 20100901
  8. PANTOZOL [Suspect]
     Dosage: UNK
  9. CLOZAPINE [Interacting]
     Dosage: 375 MG, DAILY
     Dates: start: 20100101, end: 20100101

REACTIONS (4)
  - DRUG INTERACTION [None]
  - EXTRAPYRAMIDAL DISORDER [None]
  - PLEUROTHOTONUS [None]
  - DRUG LEVEL INCREASED [None]
